FAERS Safety Report 7724845-5 (Version None)
Quarter: 2011Q3

REPORT INFORMATION
  Report Type: 
  Country: None (occurrence: None)
  Receive Date: 20110901
  Receipt Date: 20110829
  Transmission Date: 20111222
  Serious: Yes (Other)
  Sender: FDA-Public Use
  Company Number: US-SANOFI-AVENTIS-2011SA055313

PATIENT
  Sex: Female

DRUGS (6)
  1. ASPIRIN [Concomitant]
  2. PROZAC [Concomitant]
  3. ZETIA [Concomitant]
  4. PLAVIX [Suspect]
     Route: 048
     Dates: start: 20090101
  5. RAMIPRIL [Concomitant]
  6. METOPROLOL TARTRATE [Concomitant]

REACTIONS (1)
  - RETINAL NEOVASCULARISATION [None]
